FAERS Safety Report 19609688 (Version 1)
Quarter: 2021Q3

REPORT INFORMATION
  Report Type: Spontaneous
  Country: US (occurrence: US)
  Receive Date: 20210726
  Receipt Date: 20210726
  Transmission Date: 20211014
  Serious: Yes (Other)
  Sender: FDA-Public Use
  Company Number: US-EPICPHARMA-US-2021EPCLIT00753

PATIENT
  Age: 51 Year
  Sex: Male

DRUGS (17)
  1. MORPHINE SULFATE. [Suspect]
     Active Substance: MORPHINE SULFATE
     Route: 037
     Dates: start: 20180726
  2. GABAPENTIN. [Concomitant]
     Active Substance: GABAPENTIN
     Route: 065
  3. HYDROMORPHONE [Interacting]
     Active Substance: HYDROMORPHONE
     Route: 037
  4. MORPHINE SULFATE. [Suspect]
     Active Substance: MORPHINE SULFATE
     Route: 037
     Dates: start: 20180417
  5. MORPHINE SULFATE. [Suspect]
     Active Substance: MORPHINE SULFATE
     Route: 037
  6. MORPHINE SULFATE. [Suspect]
     Active Substance: MORPHINE SULFATE
     Route: 037
     Dates: start: 20171229
  7. PREDNISONE. [Interacting]
     Active Substance: PREDNISONE
     Indication: PRODUCT USED FOR UNKNOWN INDICATION
     Route: 065
  8. MORPHINE SULFATE. [Suspect]
     Active Substance: MORPHINE SULFATE
     Route: 037
     Dates: start: 20180206
  9. MORPHINE SULFATE. [Suspect]
     Active Substance: MORPHINE SULFATE
     Indication: PAIN
     Route: 037
  10. METHADONE [Concomitant]
     Active Substance: METHADONE HYDROCHLORIDE
  11. DULOXETINE. [Concomitant]
     Active Substance: DULOXETINE
     Route: 065
  12. MORPHINE SULFATE. [Suspect]
     Active Substance: MORPHINE SULFATE
     Route: 037
     Dates: start: 20180613
  13. OXYCODONE [Concomitant]
     Active Substance: OXYCODONE
     Route: 065
  14. MORPHINE SULFATE. [Suspect]
     Active Substance: MORPHINE SULFATE
     Route: 037
     Dates: start: 20180925
  15. MORPHINE SULFATE. [Suspect]
     Active Substance: MORPHINE SULFATE
     Route: 037
     Dates: start: 20181009
  16. METHADONE [Concomitant]
     Active Substance: METHADONE HYDROCHLORIDE
     Route: 065
  17. HYDROMORPHONE [Interacting]
     Active Substance: HYDROMORPHONE
     Indication: PAIN
     Route: 037

REACTIONS (1)
  - Arachnoiditis [Recovering/Resolving]
